FAERS Safety Report 17192760 (Version 4)
Quarter: 2021Q2

REPORT INFORMATION
  Report Type: Spontaneous
  Country: US (occurrence: US)
  Receive Date: 20191223
  Receipt Date: 20210406
  Transmission Date: 20210716
  Serious: No
  Sender: FDA-Public Use
  Company Number: US-SA-2019SA353932

PATIENT
  Age: 24 Year
  Sex: Female

DRUGS (5)
  1. CELLCEPT [Concomitant]
     Active Substance: MYCOPHENOLATE MOFETIL\MYCOPHENOLATE MOFETIL HYDROCHLORIDE
     Dosage: UNK
     Dates: start: 202103
  2. PLAQUENIL [Suspect]
     Active Substance: HYDROXYCHLOROQUINE SULFATE
     Dosage: UNK
     Dates: end: 202103
  3. CABLIVI [Suspect]
     Active Substance: CAPLACIZUMAB-YHDP
     Indication: THROMBOTIC MICROANGIOPATHY
     Dosage: 11 MG, QD
     Route: 058
     Dates: start: 20191209, end: 202001
  4. PREDNISONE. [Suspect]
     Active Substance: PREDNISONE
  5. CABLIVI [Suspect]
     Active Substance: CAPLACIZUMAB-YHDP
     Dosage: 11 MG, QD
     Route: 058
     Dates: start: 20210313

REACTIONS (6)
  - Mouth haemorrhage [Recovered/Resolved]
  - Rash [Unknown]
  - Arthralgia [Unknown]
  - Throat tightness [Unknown]
  - Insomnia [Recovering/Resolving]
  - Sensory disturbance [Unknown]

NARRATIVE: CASE EVENT DATE: 202103
